FAERS Safety Report 10211646 (Version 1)
Quarter: 2014Q2

REPORT INFORMATION
  Report Type: Spontaneous
  Country: US (occurrence: None)
  Receive Date: 20140530
  Receipt Date: 20140530
  Transmission Date: 20141212
  Serious: Yes (Hospitalization)
  Sender: FDA-Public Use
  Company Number: None

PATIENT
  Age: 54 Year
  Sex: Male
  Weight: 102.3 kg

DRUGS (2)
  1. LISINOPRIL [Suspect]
     Indication: HYPERKALAEMIA
     Route: 048
     Dates: start: 20140221, end: 20140221
  2. LISINOPRIL [Suspect]
     Indication: BLOOD CREATININE ABNORMAL
     Route: 048
     Dates: start: 20140221, end: 20140221

REACTIONS (2)
  - Renal failure acute [None]
  - Medication error [None]
